FAERS Safety Report 4587688-X (Version None)
Quarter: 2005Q1

REPORT INFORMATION
  Report Type: 
  Country: None (occurrence: None)
  Receive Date: 20050218
  Receipt Date: 20030605
  Transmission Date: 20050727
  Serious: Yes (Hospitalization, Other)
  Sender: FDA-Public Use
  Company Number: US-MERCK-0306USA00610

PATIENT
  Age: 53 Year
  Sex: Female
  Weight: 96 kg

DRUGS (16)
  1. VIOXX [Suspect]
     Indication: OSTEOARTHRITIS
     Route: 048
     Dates: start: 19990924, end: 20010901
  2. VIOXX [Suspect]
     Route: 048
  3. VIOXX [Suspect]
     Route: 048
  4. ZOCOR [Concomitant]
     Route: 065
  5. SKELAXIN [Concomitant]
     Route: 065
  6. ULTRAM [Concomitant]
     Route: 065
  7. FUROSEMIDE [Concomitant]
     Route: 065
  8. ZESTRIL [Concomitant]
     Route: 065
  9. HYDROCODONE BITARTRATE + ACETAMINOPHEN [Concomitant]
     Route: 065
  10. LOPRESSOR [Concomitant]
     Route: 065
  11. IMDUR [Concomitant]
     Route: 065
  12. DIGOXIN [Concomitant]
     Route: 065
  13. ASPIRIN [Concomitant]
     Route: 065
  14. AEROBID [Concomitant]
     Route: 065
  15. ALBUTEROL [Concomitant]
     Route: 065
  16. IPRATROPIUM BROMIDE [Concomitant]
     Route: 065

REACTIONS (45)
  - ANEURYSM [None]
  - ANGINA PECTORIS [None]
  - ARTERIAL STENOSIS [None]
  - ARTHRALGIA [None]
  - ASTHENIA [None]
  - ATELECTASIS [None]
  - BACK PAIN [None]
  - BLOOD PRESSURE INCREASED [None]
  - BUNDLE BRANCH BLOCK RIGHT [None]
  - CARDIAC FAILURE CONGESTIVE [None]
  - CARDIOMYOPATHY [None]
  - CERVICOBRACHIAL SYNDROME [None]
  - CHEST DISCOMFORT [None]
  - CHEST PAIN [None]
  - COCCYDYNIA [None]
  - CONVULSION [None]
  - CORONARY ARTERY STENOSIS [None]
  - DIZZINESS [None]
  - DRUG INEFFECTIVE [None]
  - DYSPEPSIA [None]
  - EJECTION FRACTION DECREASED [None]
  - FALL [None]
  - GAIT DISTURBANCE [None]
  - HEADACHE [None]
  - HYPERCHOLESTEROLAEMIA [None]
  - HYPOAESTHESIA [None]
  - LEFT VENTRICULAR FAILURE [None]
  - LUMBAR RADICULOPATHY [None]
  - LUMBAR SPINAL STENOSIS [None]
  - MUSCLE SPASMS [None]
  - MYOCARDIAL INFARCTION [None]
  - NAUSEA [None]
  - NECK PAIN [None]
  - OEDEMA PERIPHERAL [None]
  - OSTEOARTHRITIS [None]
  - PAIN IN EXTREMITY [None]
  - PLANTAR FASCIITIS [None]
  - PNEUMONIA [None]
  - PRODUCTIVE COUGH [None]
  - PULMONARY HYPERTENSION [None]
  - SPINAL OSTEOARTHRITIS [None]
  - UPPER RESPIRATORY TRACT INFECTION [None]
  - VENTRICULAR DYSFUNCTION [None]
  - WEIGHT DECREASED [None]
  - WHEEZING [None]
